FAERS Safety Report 20345532 (Version 1)
Quarter: 2022Q1

REPORT INFORMATION
  Report Type: Report from Study
  Country: US (occurrence: US)
  Receive Date: 20220118
  Receipt Date: 20220118
  Transmission Date: 20220424
  Serious: Yes (Hospitalization)
  Sender: FDA-Public Use
  Company Number: US-MYLANLABS-2022M1003138

PATIENT
  Sex: Male

DRUGS (1)
  1. CISPLATIN [Suspect]
     Active Substance: CISPLATIN
     Indication: Oropharyngeal cancer
     Dosage: UNK
     Route: 065

REACTIONS (5)
  - Constipation [Unknown]
  - Febrile neutropenia [Unknown]
  - Nausea [Unknown]
  - Gastrointestinal disorder [Unknown]
  - Nephropathy toxic [Unknown]
